FAERS Safety Report 4626450-6 (Version None)
Quarter: 2005Q1

REPORT INFORMATION
  Report Type: 
  Country: None (occurrence: None)
  Receive Date: 20050330
  Receipt Date: 20050311
  Transmission Date: 20050727
  Serious: Yes (Other)
  Sender: FDA-Public Use
  Company Number: USA050289640

PATIENT
  Age: 68 Year
  Sex: Female

DRUGS (1)
  1. FORTEO [Suspect]
     Indication: OSTEOPOROSIS
     Dosage: 20 UG EVERY OTHER DAY
     Dates: start: 20050121

REACTIONS (5)
  - BREAST CANCER [None]
  - BREAST MICROCALCIFICATION [None]
  - HERNIA [None]
  - MASS [None]
  - PHARMACEUTICAL PRODUCT COMPLAINT [None]
